FAERS Safety Report 8002677-0 (Version None)
Quarter: 2011Q4

REPORT INFORMATION
  Report Type: 
  Country: None (occurrence: None)
  Receive Date: 20111220
  Receipt Date: 20111205
  Transmission Date: 20120403
  Serious: Yes (Hospitalization)
  Sender: FDA-Public Use
  Company Number: FK201102893

PATIENT
  Age: 59 Year
  Sex: Female

DRUGS (2)
  1. CAPECITABINE [Concomitant]
  2. PAMIDRONATE DISODIUM [Suspect]
     Indication: METASTASES TO BONE
     Dosage: 44 DOSES TOTAL, INTRAVENOUS
     Route: 042

REACTIONS (6)
  - FALL [None]
  - STRESS FRACTURE [None]
  - BONE MARROW OEDEMA [None]
  - FRACTURE DISPLACEMENT [None]
  - FEMUR FRACTURE [None]
  - OSTEOSCLEROSIS [None]
